FAERS Safety Report 8862666 (Version 1)
Quarter: 2012Q4

REPORT INFORMATION
  Report Type: 
  Country: CN (occurrence: CN)
  Receive Date: 20121026
  Receipt Date: 20121026
  Transmission Date: 20130627
  Serious: Yes (Other)
  Sender: FDA-Public Use
  Company Number: CN-PFIZER INC-2012267211

PATIENT
  Sex: Male

DRUGS (2)
  1. LYRICA [Suspect]
     Indication: POST HERPETIC NEURALGIA
     Dosage: 150 mg, twice daily
  2. LYRICA [Suspect]
     Dosage: 75 mg, twice daily

REACTIONS (3)
  - Alanine aminotransferase increased [Recovering/Resolving]
  - Oedema peripheral [Recovered/Resolved]
  - Neuralgia [Unknown]
